FAERS Safety Report 15428710 (Version 1)
Quarter: 2018Q3

REPORT INFORMATION
  Report Type: Spontaneous
  Country: US (occurrence: US)
  Receive Date: 20180926
  Receipt Date: 20180926
  Transmission Date: 20181010
  Serious: Yes (Other)
  Sender: FDA-Public Use
  Company Number: US-HIKMA PHARMACEUTICALS USA INC.-US-H14001-18-07529

PATIENT
  Age: 23 Year
  Sex: Male

DRUGS (2)
  1. DEXTROAMPHETAMINE, AMPHETAMINE [Concomitant]
     Indication: ATTENTION DEFICIT/HYPERACTIVITY DISORDER
     Route: 065
  2. BUPRENORPHINE. [Suspect]
     Active Substance: BUPRENORPHINE
     Indication: PRODUCT USED FOR UNKNOWN INDICATION
     Route: 013

REACTIONS (4)
  - Arterial occlusive disease [Recovering/Resolving]
  - Foreign body embolism [Recovering/Resolving]
  - Intentional product misuse [Unknown]
  - Ischaemia [Recovering/Resolving]
